FAERS Safety Report 13953181 (Version 2)
Quarter: 2017Q3

REPORT INFORMATION
  Report Type: Spontaneous
  Country: FR (occurrence: FR)
  Receive Date: 20170911
  Receipt Date: 20170921
  Transmission Date: 20171128
  Serious: Yes (Death, Hospitalization)
  Sender: FDA-Public Use
  Company Number: FR-BIOGEN-2017BI00455474

PATIENT
  Age: 1 Year
  Sex: Male

DRUGS (1)
  1. SPINRAZA [Suspect]
     Active Substance: NUSINERSEN
     Indication: SPINAL MUSCULAR ATROPHY
     Route: 037
     Dates: start: 20170331, end: 20170601

REACTIONS (4)
  - Brain hypoxia [Unknown]
  - Hypoglycaemic coma [Fatal]
  - Apallic syndrome [Unknown]
  - Status epilepticus [Fatal]

NARRATIVE: CASE EVENT DATE: 20170826
